FAERS Safety Report 5880512-4 (Version None)
Quarter: 2008Q3

REPORT INFORMATION
  Report Type: 
  Country: None (occurrence: None)
  Receive Date: 20080912
  Receipt Date: 20080908
  Transmission Date: 20090109
  Serious: Yes (Hospitalization, Other)
  Sender: FDA-Public Use
  Company Number: JP-ABBOTT-08P-087-0443619-00

PATIENT
  Sex: Male

DRUGS (5)
  1. LEUPROLIDE ACETATE [Suspect]
     Indication: PROSTATE CANCER STAGE IV
     Route: 058
     Dates: start: 20060619
  2. LEUPROLIDE ACETATE [Suspect]
     Dates: start: 20071203, end: 20071203
  3. TELMISARTAN [Concomitant]
     Indication: HYPERTENSION
     Route: 048
  4. ATORVASTATIN CALCIUM [Concomitant]
     Indication: HYPERLIPIDAEMIA
     Route: 048
  5. FLUTAMIDE [Concomitant]
     Indication: PROSTATE CANCER STAGE III
     Dates: start: 20060601

REACTIONS (1)
  - INJECTION SITE NODULE [None]
